FAERS Safety Report 9071975 (Version 1)
Quarter: 2013Q1

REPORT INFORMATION
  Report Type: Spontaneous
  Country: US (occurrence: US)
  Receive Date: 20130206
  Receipt Date: 20130206
  Transmission Date: 20140127
  Serious: No
  Sender: FDA-Public Use
  Company Number: US-ALLERGAN-1214749US

PATIENT
  Age: 57 Year
  Sex: Female

DRUGS (6)
  1. RESTASIS? [Suspect]
     Indication: DRY EYE
     Dosage: 2 UNK, UNK
     Route: 047
     Dates: start: 2011
  2. LYRICA [Concomitant]
     Indication: NECK PAIN
     Dosage: UNK
     Dates: start: 2009
  3. IBUPROFEN [Concomitant]
     Indication: NECK PAIN
     Dosage: UNK UNK, PRN
     Route: 048
  4. ZOLPIDEM [Concomitant]
     Indication: INSOMNIA
     Dosage: UNK UNK, QHS
     Route: 048
     Dates: start: 2009
  5. LEVOTHYROXINE [Concomitant]
     Indication: HYPOTHYROIDISM
     Dosage: UNK UNK, QD
     Route: 048
     Dates: start: 1982
  6. FAMVIR                             /01226201/ [Concomitant]
     Indication: ORAL HERPES
     Dosage: UNK UNK, PRN
     Route: 048

REACTIONS (2)
  - Eyelid ptosis [Recovered/Resolved]
  - Foreign body sensation in eyes [Recovering/Resolving]
